FAERS Safety Report 7596086-6 (Version None)
Quarter: 2011Q3

REPORT INFORMATION
  Report Type: 
  Country: None (occurrence: None)
  Receive Date: 20110707
  Receipt Date: 20110623
  Transmission Date: 20111222
  Serious: No
  Sender: FDA-Public Use
  Company Number: US-B.I. PHARMACEUTICALS,INC./RIDGEFIELD-2011-BP-14547BP

PATIENT
  Age: 84 Year
  Sex: Female

DRUGS (10)
  1. MEDICATION NOT FURTHER SPECIFIED [Concomitant]
  2. PRADAXA [Suspect]
     Indication: ATRIAL FIBRILLATION
     Dosage: 300 MG
     Route: 048
     Dates: start: 20101201
  3. SYNTHROID [Concomitant]
     Dosage: 188 MG
  4. VITAMIN D [Concomitant]
     Dosage: 1000 U
  5. PRADAXA [Suspect]
     Indication: CEREBROVASCULAR ACCIDENT PROPHYLAXIS
  6. AMIODARONE HCL [Concomitant]
     Indication: CARDIAC DISORDER
     Dosage: 200 MG
  7. CELEXA [Concomitant]
     Dosage: 40 MG
  8. PACERONE [Concomitant]
     Indication: ATRIAL FIBRILLATION
  9. SUPER COQ10 [Concomitant]
  10. PRESSER VISION [Concomitant]
     Indication: EYE DISORDER

REACTIONS (5)
  - RECTAL HAEMORRHAGE [None]
  - HEADACHE [None]
  - DIZZINESS [None]
  - CONTUSION [None]
  - RASH MACULAR [None]
